FAERS Safety Report 11688273 (Version 1)
Quarter: 2015Q4

REPORT INFORMATION
  Report Type: Spontaneous
  Country: FR (occurrence: FR)
  Receive Date: 20151030
  Receipt Date: 20151030
  Transmission Date: 20160304
  Serious: Yes (Life-Threatening)
  Sender: FDA-Public Use
  Company Number: DE-ASTRAZENECA-2015SF04284

PATIENT
  Age: 70 Year
  Sex: Female

DRUGS (8)
  1. LOVENOX [Suspect]
     Active Substance: ENOXAPARIN SODIUM
     Route: 058
  2. PROZAC [Suspect]
     Active Substance: FLUOXETINE HYDROCHLORIDE
     Route: 048
  3. MORPHINE SULFATE. [Suspect]
     Active Substance: MORPHINE SULFATE
     Route: 048
  4. CEFEPIME HYDROCHLORIDE. [Suspect]
     Active Substance: CEFEPIME HYDROCHLORIDE
     Route: 042
  5. FORLAX [Suspect]
     Active Substance: POLYETHYLENE GLYCOL 4000
     Route: 048
  6. OMEPRAZOLE MAGNESIUM. [Suspect]
     Active Substance: OMEPRAZOLE MAGNESIUM
     Route: 048
  7. PARACETAMOL [Suspect]
     Active Substance: ACETAMINOPHEN
     Route: 048
  8. BROMAZEPAM [Suspect]
     Active Substance: BROMAZEPAM
     Route: 048

REACTIONS (4)
  - Encephalopathy [Unknown]
  - Epilepsy [Unknown]
  - Seizure [Unknown]
  - Respiratory disorder [Unknown]
